FAERS Safety Report 9637450 (Version 1)
Quarter: 2013Q4

REPORT INFORMATION
  Report Type: Spontaneous
  Country: US (occurrence: US)
  Receive Date: 20131022
  Receipt Date: 20131022
  Transmission Date: 20140711
  Serious: Yes (Hospitalization)
  Sender: FDA-Public Use
  Company Number: US-JNJFOC-20131009705

PATIENT
  Age: 57 Year
  Sex: Female

DRUGS (4)
  1. INVEGA SUSTENNA [Suspect]
     Indication: PRODUCT USED FOR UNKNOWN INDICATION
     Route: 030
     Dates: start: 201301, end: 2013
  2. REMERON [Concomitant]
     Route: 065
  3. COGENTIN [Concomitant]
     Route: 065
  4. ZOLOFT [Concomitant]
     Route: 065

REACTIONS (2)
  - Hospitalisation [Recovered/Resolved]
  - Hypokalaemia [Unknown]
